FAERS Safety Report 7068435-9 (Version None)
Quarter: 2010Q4

REPORT INFORMATION
  Report Type: 
  Country: None (occurrence: None)
  Receive Date: 20101028
  Receipt Date: 20101018
  Transmission Date: 20110411
  Serious: Yes (Hospitalization)
  Sender: FDA-Public Use
  Company Number: B0681420A

PATIENT
  Age: 3 Year
  Sex: Female

DRUGS (4)
  1. AUGMENTIN '125' [Suspect]
     Indication: URINARY TRACT INFECTION
     Route: 042
     Dates: start: 20100402, end: 20100403
  2. CEFTRIAXONE [Suspect]
     Indication: LYMPHADENOPATHY
     Route: 042
     Dates: start: 20100403, end: 20100404
  3. CLINDAMICINA [Concomitant]
  4. PANTOMICINA [Concomitant]
     Route: 042

REACTIONS (1)
  - URTICARIA [None]
